FAERS Safety Report 18081865 (Version 1)
Quarter: 2020Q3

REPORT INFORMATION
  Report Type: Spontaneous
  Country: US (occurrence: US)
  Receive Date: 20200728
  Receipt Date: 20200728
  Transmission Date: 20201103
  Serious: Yes (Other)
  Sender: FDA-Public Use
  Company Number: US-SA-2020SA193884

PATIENT

DRUGS (3)
  1. VANDETANIB. [Suspect]
     Active Substance: VANDETANIB
     Indication: RECURRENT CANCER
     Dosage: 300 MG, QD
  2. VANDETANIB. [Suspect]
     Active Substance: VANDETANIB
     Dosage: 300 MG, QOD, DECREASED
  3. VANDETANIB. [Suspect]
     Active Substance: VANDETANIB
     Dosage: ESCALATED AGAIN

REACTIONS (23)
  - PCO2 increased [Recovering/Resolving]
  - Respiratory failure [Recovering/Resolving]
  - Fatigue [Recovering/Resolving]
  - Nausea [Recovering/Resolving]
  - Dyspnoea [Recovering/Resolving]
  - Forced vital capacity decreased [Recovering/Resolving]
  - Diaphragm muscle weakness [Recovering/Resolving]
  - Parkinsonian rest tremor [Not Recovered/Not Resolved]
  - Diarrhoea [Recovering/Resolving]
  - Weight decreased [Recovering/Resolving]
  - Inspiratory capacity decreased [Recovering/Resolving]
  - Postural tremor [Recovered/Resolved]
  - Asthenia [Recovering/Resolving]
  - Forced expiratory volume decreased [Recovering/Resolving]
  - Parkinsonism [Not Recovered/Not Resolved]
  - Vibration test abnormal [Not Recovered/Not Resolved]
  - Extensor plantar response [Not Recovered/Not Resolved]
  - Respiratory muscle weakness [Recovering/Resolving]
  - Hypercapnia [Recovering/Resolving]
  - Muscular weakness [Not Recovered/Not Resolved]
  - Resting tremor [Not Recovered/Not Resolved]
  - Cogwheel rigidity [Not Recovered/Not Resolved]
  - Condition aggravated [Not Recovered/Not Resolved]
